FAERS Safety Report 8815703 (Version 1)
Quarter: 2012Q4

REPORT INFORMATION
  Report Type: 
  Country: DE (occurrence: DE)
  Receive Date: 20120928
  Receipt Date: 20120928
  Transmission Date: 20130627
  Serious: Yes (Hospitalization)
  Sender: FDA-Public Use
  Company Number: DE-PFIZER INC-2012237579

PATIENT
  Age: 51 Year
  Sex: Female
  Weight: 76.3 kg

DRUGS (9)
  1. GENOTROPIN [Suspect]
     Indication: GROWTH HORMONE DEFICIENCY
     Dosage: 0.4 mg/day, 7 injections/week
     Route: 058
     Dates: start: 20050426, end: 20080925
  2. DESMOPRESSIN [Concomitant]
     Indication: BLOOD ANTIDIURETIC HORMONE DECREASED
     Dosage: UNK
     Dates: start: 19961210
  3. LEVOTHYROXINE [Concomitant]
     Indication: BLOOD THYROID STIMULATING HORMONE DECREASED
     Dosage: UNK
     Dates: start: 19961210
  4. LEVOTHYROXINE [Concomitant]
     Indication: PRIMARY HYPOTHYROIDISM
  5. METAMIZOLE [Concomitant]
     Indication: MYALGIA
     Dosage: UNK
     Dates: start: 20020415
  6. METAMIZOLE [Concomitant]
     Indication: MYOSITIS
  7. SULPIRIDE [Concomitant]
     Indication: DEPRESSION
     Dosage: UNK
     Dates: start: 20020415
  8. CRANOC [Concomitant]
     Indication: LIPIDS INCREASED
     Dosage: UNK
     Dates: start: 20041027
  9. HYDROCORTISONE [Concomitant]
     Indication: BLOOD CORTICOTROPHIN DECREASED
     Dosage: UNK
     Dates: start: 19960701

REACTIONS (1)
  - Arthropathy [Unknown]
